FAERS Safety Report 6529967-2 (Version None)
Quarter: 2009Q4

REPORT INFORMATION
  Report Type: 
  Country: None (occurrence: None)
  Receive Date: 20091231
  Receipt Date: 20091216
  Transmission Date: 20100525
  Serious: Yes (Hospitalization, Congenital Anomaly)
  Sender: FDA-Public Use
  Company Number: 8044947

PATIENT

DRUGS (5)
  1. KEPPRA [Suspect]
     Indication: EPILEPSY
     Dosage: (TRANSPLACENTAL)
     Route: 064
  2. DEPAKENE [Suspect]
     Indication: EPILEPSY
     Dosage: (600 MG QD, STRUCTURE DOSAGE NUMBER 300MG TRANSPLACENTAL)
     Route: 064
  3. FRISIUM (FRISIUM) (NOT SPECIFIED) [Suspect]
     Indication: EPILEPSY
     Dosage: (TRANSPLACENTAL)
     Route: 064
  4. FENEMAL (FENEMAL) [Suspect]
     Indication: EPILEPSY
     Dosage: (TRANSPLACENTAL)
     Route: 064
  5. ZONISAMIDE [Suspect]
     Indication: EPILEPSY
     Dosage: (TRANSPLACENTAL)
     Route: 064

REACTIONS (3)
  - EPILEPSY [None]
  - LIMB MALFORMATION [None]
  - MATERNAL DRUGS AFFECTING FOETUS [None]
